FAERS Safety Report 8622076-8 (Version None)
Quarter: 2012Q3

REPORT INFORMATION
  Report Type: 
  Country: None (occurrence: None)
  Receive Date: 20120822
  Receipt Date: 20120822
  Transmission Date: 20120928
  Serious: Yes (Death, Hospitalization)
  Sender: FDA-Public Use
  Company Number: None

PATIENT
  Sex: Male
  Weight: 55.2 kg

DRUGS (4)
  1. PREDNISONE [Suspect]
  2. METHOTREXATE SODIUM [Suspect]
  3. VINCRISTINE [Suspect]
     Dates: end: 20120810
  4. MERCAPTOPURINE [Suspect]
     Dates: start: 20090821

REACTIONS (5)
  - MOANING [None]
  - SEPTIC SHOCK [None]
  - NEUTROPENIA [None]
  - UNRESPONSIVE TO STIMULI [None]
  - CARDIAC ARREST [None]
